FAERS Safety Report 6805611-1 (Version None)
Quarter: 2010Q2

REPORT INFORMATION
  Report Type: 
  Country: None (occurrence: None)
  Receive Date: 20100628
  Receipt Date: 20071231
  Transmission Date: 20101027
  Serious: Yes (Other)
  Sender: FDA-Public Use
  Company Number: US-PFIZER INC-2007058558

PATIENT
  Sex: Female

DRUGS (1)
  1. XALATAN [Suspect]

REACTIONS (5)
  - DRUG HYPERSENSITIVITY [None]
  - EYE SWELLING [None]
  - EYELID OEDEMA [None]
  - INTRAOCULAR PRESSURE TEST ABNORMAL [None]
  - OCULAR HYPERAEMIA [None]
